FAERS Safety Report 7898590-X (Version None)
Quarter: 2011Q4

REPORT INFORMATION
  Report Type: 
  Country: None (occurrence: None)
  Receive Date: 20111107
  Receipt Date: 20110729
  Transmission Date: 20120403
  Serious: No
  Sender: FDA-Public Use
  Company Number: US-BAYER-2011-069351

PATIENT
  Sex: Male

DRUGS (2)
  1. ALEVE (CAPLET) [Suspect]
     Indication: ANALGESIC THERAPY
     Route: 048
  2. AMBIEN [Suspect]

REACTIONS (1)
  - PAIN [None]
